FAERS Safety Report 15738197 (Version 1)
Quarter: 2018Q4

REPORT INFORMATION
  Report Type: Report from Study
  Country: MX (occurrence: MX)
  Receive Date: 20181219
  Receipt Date: 20181219
  Transmission Date: 20190205
  Serious: Yes (Death)
  Sender: FDA-Public Use
  Company Number: MX-UCBSA-2018054441

PATIENT
  Age: 78 Year
  Sex: Female

DRUGS (2)
  1. LACOSAMIDE. [Suspect]
     Active Substance: LACOSAMIDE
     Indication: SEIZURE
     Dosage: ? TABLET IN THE MORNING AND ? TABLET AT NIGHT (2X/DAY (BID)
     Route: 048
     Dates: start: 20150521
  2. LACOSAMIDE. [Suspect]
     Active Substance: LACOSAMIDE
     Dosage: ? TABLET, 2X/DAY (BID)
     Route: 048
     Dates: end: 201705

REACTIONS (3)
  - Erythema [Not Recovered/Not Resolved]
  - Dementia Alzheimer^s type [Fatal]
  - Off label use [Unknown]

NARRATIVE: CASE EVENT DATE: 201505
